FAERS Safety Report 17460011 (Version 1)
Quarter: 2020Q1

REPORT INFORMATION
  Report Type: Spontaneous
  Country: US (occurrence: US)
  Receive Date: 20200225
  Receipt Date: 20200225
  Transmission Date: 20200409
  Serious: Yes (Other)
  Sender: FDA-Public Use
  Company Number: US-ASTRAZENECA-2020SE25652

PATIENT

DRUGS (3)
  1. FASLODEX [Suspect]
     Active Substance: FULVESTRANT
     Indication: BREAST CANCER
     Route: 030
  2. PREDNISONE. [Concomitant]
     Active Substance: PREDNISONE
  3. IBRANCE [Suspect]
     Active Substance: PALBOCICLIB
     Indication: BREAST CANCER
     Route: 048
     Dates: start: 201903

REACTIONS (6)
  - Musculoskeletal pain [Unknown]
  - Neck pain [Unknown]
  - Constipation [Unknown]
  - Pneumonia [Unknown]
  - Anaemia [Unknown]
  - Product dose omission [Unknown]
